FAERS Safety Report 19438621 (Version 5)
Quarter: 2021Q3

REPORT INFORMATION
  Report Type: Report from Study
  Country: JP (occurrence: JP)
  Receive Date: 20210618
  Receipt Date: 20210929
  Transmission Date: 20211014
  Serious: Yes (Hospitalization, Other)
  Sender: FDA-Public Use
  Company Number: NVSC2021JP077685

PATIENT
  Age: 50 Year
  Sex: Female
  Weight: 72.8 kg

DRUGS (5)
  1. IMUSERA [Suspect]
     Active Substance: FINGOLIMOD HYDROCHLORIDE
     Dosage: 0.5 MG, QD
     Route: 048
     Dates: start: 20200716
  2. SYMMETREL [Concomitant]
     Active Substance: AMANTADINE HYDROCHLORIDE
     Indication: PRODUCT USED FOR UNKNOWN INDICATION
     Dosage: UNK
     Route: 065
  3. INTERFERON BETA?1B [Concomitant]
     Active Substance: INTERFERON BETA-1B
     Indication: PRODUCT USED FOR UNKNOWN INDICATION
     Dosage: UNK
     Route: 065
     Dates: start: 2002, end: 201208
  4. RIVOTRIL [Concomitant]
     Active Substance: CLONAZEPAM
     Indication: MULTIPLE SCLEROSIS
     Dosage: UNK
     Route: 065
     Dates: start: 20150212
  5. IMUSERA [Suspect]
     Active Substance: FINGOLIMOD HYDROCHLORIDE
     Indication: MULTIPLE SCLEROSIS
     Dosage: 0.5 MG, QD
     Route: 048
     Dates: start: 20120802, end: 20210315

REACTIONS (9)
  - Immune reconstitution inflammatory syndrome [Recovered/Resolved with Sequelae]
  - Progressive multifocal leukoencephalopathy [Recovered/Resolved with Sequelae]
  - Seizure [Recovered/Resolved]
  - Pyrexia [Recovered/Resolved]
  - Herpes zoster [Recovered/Resolved]
  - Vaginal infection [Recovered/Resolved]
  - Progressive multifocal leukoencephalopathy [Recovering/Resolving]
  - Haematuria [Recovered/Resolved with Sequelae]
  - Decubitus ulcer [Recovered/Resolved]

NARRATIVE: CASE EVENT DATE: 20200819
